FAERS Safety Report 4660434-7 (Version None)
Quarter: 2005Q2

REPORT INFORMATION
  Report Type: 
  Country: None (occurrence: None)
  Receive Date: 20050512
  Receipt Date: 20050505
  Transmission Date: 20051028
  Serious: Yes (Other)
  Sender: FDA-Public Use
  Company Number: CA-GLAXOSMITHKLINE-A0557616A

PATIENT
  Age: 74 Year
  Sex: Male

DRUGS (8)
  1. ZANTAC [Suspect]
     Indication: DRUG USE FOR UNKNOWN INDICATION
     Dosage: 75MG PER DAY
     Route: 048
  2. CRESTOR [Concomitant]
  3. LEVOTHYROXINE SODIUM [Concomitant]
  4. METFORMIN [Concomitant]
  5. METOPROLOL TARTRATE [Concomitant]
  6. ACETYL SALICYLIC ACID USP BAT [Concomitant]
     Indication: DRUG USE FOR UNKNOWN INDICATION
  7. SOTALOL HCL [Concomitant]
  8. GLIBENCLAMIDE [Concomitant]

REACTIONS (2)
  - ATRIAL FIBRILLATION [None]
  - FAECES DISCOLOURED [None]
